FAERS Safety Report 14199660 (Version 1)
Quarter: 2017Q4

REPORT INFORMATION
  Report Type: Spontaneous
  Country: US (occurrence: US)
  Receive Date: 20171117
  Receipt Date: 20171117
  Transmission Date: 20180321
  Serious: No
  Sender: FDA-Public Use
  Company Number: None

PATIENT
  Age: 61 Year
  Sex: Female

DRUGS (1)
  1. ACITRETIN. [Suspect]
     Active Substance: ACITRETIN
     Route: 048
     Dates: start: 20170808, end: 20171026

REACTIONS (2)
  - Vasculitis [None]
  - Rash [None]

NARRATIVE: CASE EVENT DATE: 20171026
